FAERS Safety Report 10609782 (Version 1)
Quarter: 2014Q4

REPORT INFORMATION
  Report Type: Spontaneous
  Country: US (occurrence: US)
  Receive Date: 20141126
  Receipt Date: 20141126
  Transmission Date: 20150529
  Serious: Yes (Hospitalization, Other)
  Sender: FDA-Public Use
  Company Number: US-ASTRAZENECA-2014SE87761

PATIENT
  Age: 60 Year
  Sex: Female
  Weight: 72 kg

DRUGS (8)
  1. LYRICA [Concomitant]
     Active Substance: PREGABALIN
     Indication: NERVE INJURY
     Route: 048
     Dates: start: 2012, end: 20141018
  2. CRESTOR [Suspect]
     Active Substance: ROSUVASTATIN CALCIUM
     Route: 048
     Dates: end: 20141018
  3. QUETIAPINE [Suspect]
     Active Substance: QUETIAPINE
     Route: 048
  4. HYDROCHLOROTHIAZIDE. [Concomitant]
     Active Substance: HYDROCHLOROTHIAZIDE
  5. POTASSIUM [Concomitant]
     Active Substance: POTASSIUM
  6. HYDROXYZINE [Concomitant]
     Active Substance: HYDROXYZINE\HYDROXYZINE HYDROCHLORIDE
  7. METOPROLOL [Suspect]
     Active Substance: METOPROLOL
     Route: 048
  8. BRENTELLIX [Concomitant]

REACTIONS (9)
  - Visual impairment [Recovered/Resolved]
  - Liver function test abnormal [Recovered/Resolved]
  - Anxiety [Not Recovered/Not Resolved]
  - Off label use [Unknown]
  - Blood potassium decreased [Unknown]
  - Depressed mood [Not Recovered/Not Resolved]
  - Lung neoplasm malignant [Unknown]
  - Toxicity to various agents [Unknown]
  - Aortic aneurysm [Unknown]

NARRATIVE: CASE EVENT DATE: 201405
